FAERS Safety Report 24878737 (Version 2)
Quarter: 2025Q1

REPORT INFORMATION
  Report Type: Spontaneous
  Country: US (occurrence: US)
  Receive Date: 20250123
  Receipt Date: 20250218
  Transmission Date: 20250408
  Serious: No
  Sender: AMGEN
  Company Number: US-AMGEN-USASP2025014103

PATIENT
  Age: 50 Year
  Sex: Female

DRUGS (2)
  1. AIMOVIG [Suspect]
     Active Substance: ERENUMAB-AOOE
     Indication: Headache
     Dosage: 140 MILLIGRAM, QMO
     Route: 058
  2. AIMOVIG [Suspect]
     Active Substance: ERENUMAB-AOOE
     Indication: Off label use

REACTIONS (7)
  - Visual impairment [Not Recovered/Not Resolved]
  - Headache [Not Recovered/Not Resolved]
  - Drug dose omission by device [Unknown]
  - Accidental exposure to product [Unknown]
  - Wrong technique in product usage process [Unknown]
  - Device difficult to use [Unknown]
  - Off label use [Unknown]

NARRATIVE: CASE EVENT DATE: 20240101
